FAERS Safety Report 22312345 (Version 2)
Quarter: 2023Q2

REPORT INFORMATION
  Report Type: Report from Study
  Country: JP (occurrence: JP)
  Receive Date: 20230512
  Receipt Date: 20230523
  Transmission Date: 20230722
  Serious: Yes (Hospitalization)
  Sender: FDA-Public Use
  Company Number: JP-CHUGAI-2023016243

PATIENT
  Age: 39 Year
  Sex: Male
  Weight: 54.7 kg

DRUGS (9)
  1. ATEZOLIZUMAB [Suspect]
     Active Substance: ATEZOLIZUMAB
     Indication: Rectal cancer
     Route: 041
     Dates: start: 20230410, end: 20230410
  2. LOXOPROFEN SODIUM [Concomitant]
     Active Substance: LOXOPROFEN SODIUM
     Indication: Cancer pain
     Route: 048
     Dates: start: 202301
  3. MIYA-BM [Concomitant]
     Active Substance: CLOSTRIDIUM BUTYRICUM SPORES STRAIN M-55
     Indication: Cancer pain
     Route: 048
     Dates: start: 202301
  4. CALONAL [Concomitant]
     Active Substance: ACETAMINOPHEN
     Indication: Cancer pain
     Route: 048
     Dates: start: 20230328
  5. SYMPROIC [Concomitant]
     Active Substance: NALDEMEDINE
     Indication: Constipation prophylaxis
     Route: 048
     Dates: start: 20230328
  6. DIETARY SUPPLEMENT\PROBIOTICS [Concomitant]
     Active Substance: DIETARY SUPPLEMENT\PROBIOTICS NOS
     Indication: Constipation
     Route: 048
     Dates: start: 20230406
  7. LAGNOS NF [Concomitant]
     Indication: Constipation
     Route: 048
     Dates: start: 20230409
  8. OXYCODONE HYDROCHLORIDE [Concomitant]
     Active Substance: OXYCODONE HYDROCHLORIDE
     Indication: Cancer pain
     Route: 041
     Dates: start: 20230405, end: 20230425
  9. OXYCODONE HYDROCHLORIDE [Concomitant]
     Active Substance: OXYCODONE HYDROCHLORIDE
     Route: 041
     Dates: start: 20230405

REACTIONS (1)
  - Device related infection [Recovered/Resolved]

NARRATIVE: CASE EVENT DATE: 20230426
